FAERS Safety Report 6925552-9 (Version None)
Quarter: 2010Q3

REPORT INFORMATION
  Report Type: 
  Country: None (occurrence: None)
  Receive Date: 20100813
  Receipt Date: 20100813
  Transmission Date: 20110219
  Serious: No
  Sender: FDA-Public Use
  Company Number: None

PATIENT

DRUGS (2)
  1. PREVACID [Suspect]
     Dates: start: 20000101
  2. PLAVIX [Suspect]
     Dates: start: 20000101

REACTIONS (4)
  - CEREBROVASCULAR ACCIDENT [None]
  - DRUG INEFFECTIVE [None]
  - INHIBITORY DRUG INTERACTION [None]
  - PRODUCT QUALITY ISSUE [None]
